FAERS Safety Report 4681369-X (Version None)
Quarter: 2005Q2

REPORT INFORMATION
  Report Type: 
  Country: None (occurrence: None)
  Receive Date: 20050601
  Receipt Date: 20050523
  Transmission Date: 20051028
  Serious: Yes (Hospitalization)
  Sender: FDA-Public Use
  Company Number: 231795K05USA

PATIENT
  Age: 52 Year
  Sex: Female
  Weight: 66.6788 kg

DRUGS (5)
  1. REBIF [Suspect]
     Indication: MULTIPLE SCLEROSIS
     Dosage: 44 MCG, 3 IN 1 WEEKS, SUBCUTANEOUS
     Route: 058
     Dates: start: 20020101
  2. ZANAFLEX [Concomitant]
  3. NEURONTIN [Concomitant]
  4. PROVIGIL [Concomitant]
  5. BACLOFEN [Concomitant]

REACTIONS (10)
  - ABDOMINAL MASS [None]
  - ABDOMINAL PAIN [None]
  - GASTRIC DISORDER [None]
  - INJECTION SITE ERYTHEMA [None]
  - NAUSEA [None]
  - OVARIAN ATROPHY [None]
  - SHIFT TO THE LEFT [None]
  - STOMACH DISCOMFORT [None]
  - VOMITING [None]
  - WHITE BLOOD CELLS URINE POSITIVE [None]
